FAERS Safety Report 24614182 (Version 1)
Quarter: 2024Q4

REPORT INFORMATION
  Report Type: Spontaneous
  Country: IT (occurrence: IT)
  Receive Date: 20241113
  Receipt Date: 20241113
  Transmission Date: 20250115
  Serious: Yes (Other)
  Sender: AUROBINDO
  Company Number: IT-ASTELLAS-2016US048698

PATIENT
  Age: 72 Year
  Sex: Male

DRUGS (6)
  1. BENDAMUSTINE HYDROCHLORIDE [Suspect]
     Active Substance: BENDAMUSTINE HYDROCHLORIDE
     Indication: Large granular lymphocytosis
     Dosage: 70 MILLIGRAM/SQ. METER [70 MG/M2, CYCLIC (6 CYCLES FOR 2 DAYS EVERY 28 DAYS)]
     Route: 042
  2. CYCLOSPORINE [Suspect]
     Active Substance: CYCLOSPORINE
     Indication: Immunosuppression
     Dosage: 5 MILLIGRAM/KILOGRAM, ONCE A DAY (5 MG/KG, PER DAY)
     Route: 065
  3. FLUCONAZOLE [Concomitant]
     Active Substance: FLUCONAZOLE
     Indication: Prophylaxis
     Dosage: 200 MILLIGRAM, ONCE A DAY (200 MG, PER DAY)
     Route: 048
  4. LEVOFLOXACIN [Concomitant]
     Active Substance: LEVOFLOXACIN
     Indication: Prophylaxis
     Dosage: 500 MILLIGRAM, ONCE A DAY (500 MG, PER DAY)
     Route: 048
  5. PREDNISONE [Concomitant]
     Active Substance: PREDNISONE
     Indication: Immunosuppression
     Dosage: 0.5 MILLIGRAM/KILOGRAM, ONCE A DAY [0.5 MG/KG, PER DAY.]
     Route: 065
  6. SULFAMETHOXAZOLE\TRIMETHOPRIM [Concomitant]
     Active Substance: SULFAMETHOXAZOLE\TRIMETHOPRIM
     Indication: Antifungal prophylaxis
     Dosage: UNK UNK, EVERY WEEK [160-800 MG, TWICE WEEKLY]
     Route: 065

REACTIONS (4)
  - Neutropenia [Unknown]
  - Hypertransaminasaemia [Unknown]
  - Hyperbilirubinaemia [Unknown]
  - Prescribed underdose [Unknown]
